FAERS Safety Report 24104573 (Version 1)
Quarter: 2024Q3

REPORT INFORMATION
  Report Type: Spontaneous
  Country: US (occurrence: US)
  Receive Date: 20240717
  Receipt Date: 20240717
  Transmission Date: 20241017
  Serious: Yes (Hospitalization)
  Sender: PFIZER
  Company Number: US-PFIZER INC-202400216063

PATIENT
  Age: 86 Year

DRUGS (1)
  1. CIPROFLOXACIN [Suspect]
     Active Substance: CIPROFLOXACIN
     Dosage: UNK

REACTIONS (7)
  - Visual impairment [Unknown]
  - Rash [Unknown]
  - Dyskinesia [Unknown]
  - Tremor [Unknown]
  - Dizziness [Unknown]
  - Abdominal distension [Unknown]
  - Dysphagia [Unknown]
